FAERS Safety Report 24694687 (Version 1)
Quarter: 2024Q4

REPORT INFORMATION
  Report Type: Spontaneous
  Country: US (occurrence: US)
  Receive Date: 20241204
  Receipt Date: 20241204
  Transmission Date: 20250114
  Serious: Yes (Other)
  Sender: ABBVIE
  Company Number: US-ABBVIE-6025929

PATIENT
  Age: 85 Year
  Sex: Male

DRUGS (1)
  1. REFRESH CLASSIC [Suspect]
     Active Substance: POLYVINYL ALCOHOL\POVIDONE
     Indication: Product used for unknown indication
     Route: 047

REACTIONS (5)
  - Cataract [Unknown]
  - Surgery [Unknown]
  - Product container issue [Unknown]
  - Hypertension [Unknown]
  - Diabetes mellitus [Unknown]
